FAERS Safety Report 14279499 (Version 2)
Quarter: 2017Q4

REPORT INFORMATION
  Report Type: Spontaneous
  Country: SE (occurrence: SE)
  Receive Date: 20171213
  Receipt Date: 20171213
  Transmission Date: 20180321
  Serious: Yes (Other)
  Sender: FDA-Public Use
  Company Number: SE-ORION CORPORATION ORION PHARMA-TREX2017-4055

PATIENT
  Age: 43 Year
  Sex: Female

DRUGS (3)
  1. METHOTREXATE (TRADE NAME UNKNOWN) [Suspect]
     Active Substance: METHOTREXATE
     Indication: PSORIATIC ARTHROPATHY
     Dosage: 8-10 TABLETS; STRENGTH: 2.5 MG
     Route: 048
     Dates: start: 20130315, end: 20170503
  2. FOLSYRA [Concomitant]
     Route: 065
  3. BENEPALI [Suspect]
     Active Substance: ETANERCEPT
     Route: 065
     Dates: end: 20170512

REACTIONS (2)
  - Maternal exposure during pregnancy [Recovered/Resolved]
  - Premature delivery [Recovered/Resolved]

NARRATIVE: CASE EVENT DATE: 2017
